FAERS Safety Report 10437124 (Version 1)
Quarter: 2014Q3

REPORT INFORMATION
  Report Type: Spontaneous
  Country: US (occurrence: US)
  Receive Date: 20140908
  Receipt Date: 20140908
  Transmission Date: 20150326
  Serious: No
  Sender: FDA-Public Use
  Company Number: US-BRISTOL-MYERS SQUIBB COMPANY-20311775

PATIENT
  Age: 22 Year
  Sex: Male

DRUGS (3)
  1. LEXAPRO [Concomitant]
     Active Substance: ESCITALOPRAM OXALATE
  2. ABILIFY [Suspect]
     Active Substance: ARIPIPRAZOLE
     Indication: PSYCHOTIC DISORDER
     Dosage: INITIAL DOSE OF 2MG AND INCRESED TO 5MG.
  3. ABILIFY [Suspect]
     Active Substance: ARIPIPRAZOLE
     Indication: MAJOR DEPRESSION
     Dosage: INITIAL DOSE OF 2MG AND INCRESED TO 5MG.

REACTIONS (2)
  - Off label use [Unknown]
  - Akathisia [Recovered/Resolved]

NARRATIVE: CASE EVENT DATE: 20140219
